FAERS Safety Report 8140226 (Version 2)
Quarter: 2012Q4

REPORT INFORMATION
  Report Type: 
  Country: DK (occurrence: DK)
  Receive Date: 20110916
  Receipt Date: 20121016
  Transmission Date: 20130627
  Serious: Yes (Life-Threatening, Disabling)
  Sender: FDA-Public Use
  Company Number: DK-PFIZER INC-2009222549

PATIENT
  Age: 55 Year
  Sex: Female
  Weight: 55 kg

DRUGS (3)
  1. SALAZOPYRIN [Suspect]
     Indication: RHEUMATOID ARTHRITIS
     Dosage: 500 mg, UNK
     Route: 048
     Dates: start: 20090116, end: 20090225
  2. PREDNISOLON [Concomitant]
     Indication: RHEUMATOID ARTHRITIS
     Dosage: UNK
     Route: 065
     Dates: start: 20081017, end: 20090224
  3. PREDNISOLON [Concomitant]
     Dosage: UNK
     Dates: start: 20090225, end: 20090416

REACTIONS (10)
  - Stevens-Johnson syndrome [Recovered/Resolved]
  - Deafness bilateral [Recovering/Resolving]
  - Tinnitus [Recovering/Resolving]
  - Urticaria [Recovered/Resolved]
  - Nail atrophy [Recovered/Resolved]
  - Alopecia [Recovered/Resolved]
  - Skin exfoliation [Recovered/Resolved]
  - Mucosal dryness [Unknown]
  - Swelling face [Recovered/Resolved]
  - Lip swelling [Recovered/Resolved]
